FAERS Safety Report 19946464 (Version 1)
Quarter: 2021Q4

REPORT INFORMATION
  Report Type: Spontaneous
  Country: DE (occurrence: DE)
  Receive Date: 20211012
  Receipt Date: 20211012
  Transmission Date: 20220303
  Serious: Yes (Hospitalization)
  Sender: FDA-Public Use
  Company Number: DE-ADRED-05838-01

PATIENT
  Age: 84 Year
  Sex: Female

DRUGS (11)
  1. HYDROCHLOROTHIAZIDE [Suspect]
     Active Substance: HYDROCHLOROTHIAZIDE
     Indication: Product used for unknown indication
     Dosage: 25 MILLIGRAM, PAUSED SINCE YESTERDAY, TABLETS
     Route: 048
  2. TROSPIUM CHLORIDE [Concomitant]
     Active Substance: TROSPIUM CHLORIDE
     Dosage: 60 MILLIGRAM, QD (60 MILLIGRAM,  0-0-1-0, RETARD-KAPSELN)
     Route: 048
  3. ASPIRIN [Concomitant]
     Active Substance: ASPIRIN
     Dosage: 100 MILLIGRAM, 0-1-0-0, TABLETTEN
     Route: 048
  4. AMLODIGAMMA TOP [Concomitant]
     Dosage: 5 MILLIGRAM, BID, 1-0-1-0, TABLETTEN
     Route: 048
  5. ALDACTONE [Concomitant]
     Active Substance: SPIRONOLACTONE
     Dosage: 50 MILLIGRAM, 0.5-0-0-0, TABLETTEN
     Route: 048
  6. ZOLPIDEM ARISTO [Concomitant]
     Dosage: 10 MILLIGRAM, 0-0-0.5-0, TABLETTEN
     Route: 048
  7. CARVEDI DENK [Concomitant]
     Dosage: 25 MILLIGRAM, QD, 0-0-1-0, TABLETTEN
     Route: 048
  8. GLUCOPHAGE [Concomitant]
     Active Substance: METFORMIN HYDROCHLORIDE
     Dosage: 850 MILLIGRAM, QD,1-0-0-0,
     Route: 048
  9. PROVAS [Concomitant]
     Active Substance: VALSARTAN
     Dosage: 160 MILLIGRAM, QD, 1-0-0-0, TABLETTEN
     Route: 048
  10. ATORVASTATIN CALCIUM\EZETIMIBE [Concomitant]
     Active Substance: ATORVASTATIN CALCIUM\EZETIMIBE
     Dosage: UNK, QD (40|10 MG, 0-0-1-0, TABLETTEN )
     Route: 048
  11. MOXONIDINE [Concomitant]
     Active Substance: MOXONIDINE
     Dosage: 0.3 MILLIGRAM, BID, 1-0-1-0,
     Route: 048

REACTIONS (4)
  - Product prescribing error [Unknown]
  - Medication error [Unknown]
  - Vomiting [Unknown]
  - Nausea [Unknown]
